FAERS Safety Report 8036781-8 (Version None)
Quarter: 2012Q1

REPORT INFORMATION
  Report Type: 
  Country: None (occurrence: None)
  Receive Date: 20120111
  Receipt Date: 20120106
  Transmission Date: 20120608
  Serious: Yes (Hospitalization, Other)
  Sender: FDA-Public Use
  Company Number: CA-ROCHE-1005914

PATIENT
  Sex: Female

DRUGS (4)
  1. SINGULAIR [Concomitant]
  2. SYMBICORT [Concomitant]
  3. XOLAIR [Suspect]
     Indication: ASTHMA
     Route: 058
     Dates: start: 20110606
  4. PREDNISONE TAB [Concomitant]

REACTIONS (2)
  - ASTHMA [None]
  - DYSPNOEA [None]
